FAERS Safety Report 16456522 (Version 1)
Quarter: 2019Q2

REPORT INFORMATION
  Report Type: Spontaneous
  Country: SE (occurrence: SE)
  Receive Date: 20190620
  Receipt Date: 20190620
  Transmission Date: 20190711
  Serious: Yes (Other)
  Sender: FDA-Public Use
  Company Number: SE-BAYER-2019-112712

PATIENT
  Age: 68 Year
  Sex: Female
  Weight: 90 kg

DRUGS (3)
  1. CIPROXIN 500/5 MG/ML [Suspect]
     Active Substance: CIPROFLOXACIN
     Indication: NEUTROPHIL COUNT DECREASED
     Dosage: UNK
  2. EPANUTIN [PHENYTOIN SODIUM] [Concomitant]
     Dosage: UNK
     Dates: start: 1976
  3. LEHYDAN [Concomitant]
     Active Substance: PHENYTOIN
     Dosage: UNK

REACTIONS (5)
  - Dizziness [Recovering/Resolving]
  - Visual impairment [Recovering/Resolving]
  - Rash pruritic [Recovering/Resolving]
  - Derealisation [Recovering/Resolving]
  - Rash [Recovering/Resolving]

NARRATIVE: CASE EVENT DATE: 201905
